FAERS Safety Report 19086050 (Version 2)
Quarter: 2021Q2

REPORT INFORMATION
  Report Type: Report from Study
  Country: CN (occurrence: CN)
  Receive Date: 20210402
  Receipt Date: 20210408
  Transmission Date: 20210717
  Serious: Yes (Hospitalization)
  Sender: FDA-Public Use
  Company Number: CN-PFIZER INC-2021314781

PATIENT
  Age: 68 Year
  Sex: Male
  Weight: 48 kg

DRUGS (49)
  1. CISPLATIN. [Suspect]
     Active Substance: CISPLATIN
     Indication: OESOPHAGEAL SQUAMOUS CELL CARCINOMA
     Dosage: 30 MG/6 ML, ONCE EVERY 3 WEEKS
     Route: 042
     Dates: start: 20201205, end: 20210206
  2. CIMETIDINE [Concomitant]
     Active Substance: CIMETIDINE
     Indication: PROPHYLAXIS
     Dosage: 4 ML, 2X/DAY
     Route: 042
     Dates: start: 20201204, end: 20201204
  3. DIPHENHYDRAMINE. [Concomitant]
     Active Substance: DIPHENHYDRAMINE
     Indication: PROPHYLAXIS
     Dosage: 50 MG, 2X/DAY
     Route: 048
     Dates: start: 20201204, end: 20201204
  4. PARACETAMOL [Concomitant]
     Active Substance: ACETAMINOPHEN
     Dosage: 1000 MG, 1X/DAY
     Route: 048
     Dates: start: 20210204, end: 20210204
  5. PANTOPRAZOLE SODIUM. [Concomitant]
     Active Substance: PANTOPRAZOLE SODIUM
     Dosage: 42.3 MG, 1X/DAY
     Route: 042
     Dates: start: 20201224, end: 20201227
  6. SODIUM POTASSIUM MAGNESIUM CALCIUM AND GLUCOSE [Concomitant]
     Indication: FLUID REPLACEMENT
     Dosage: 500 ML, 1X/DAY
     Route: 042
     Dates: start: 20201208, end: 20201208
  7. SODIUM GUALENATE [Concomitant]
     Active Substance: SODIUM GUALENATE
     Indication: PROPHYLAXIS
     Dosage: 0.67 G, 3X/DAY
     Route: 048
     Dates: start: 20201125, end: 20201208
  8. DIPHENHYDRAMINE. [Concomitant]
     Active Substance: DIPHENHYDRAMINE
     Dosage: 50 MG, 2X/DAY
     Route: 048
     Dates: start: 20210118, end: 20210118
  9. COMPOUND MANNITOL [Concomitant]
     Dosage: 250 ML, 1X/DAY
     Route: 042
     Dates: start: 20201225, end: 20201227
  10. DIPHENHYDRAMINE. [Concomitant]
     Active Substance: DIPHENHYDRAMINE
     Dosage: 50 MG, 2X/DAY
     Route: 048
     Dates: start: 20201224, end: 20201224
  11. DIPHENHYDRAMINE. [Concomitant]
     Active Substance: DIPHENHYDRAMINE
     Dosage: 0.05 G, 1X/DAY
     Route: 048
     Dates: start: 20210225, end: 20210225
  12. PARACETAMOL [Concomitant]
     Active Substance: ACETAMINOPHEN
     Dosage: 1000 MG, 1X/DAY
     Route: 048
     Dates: start: 20210118, end: 20210118
  13. PANTOPRAZOLE SODIUM. [Concomitant]
     Active Substance: PANTOPRAZOLE SODIUM
     Dosage: 42.3 MG, 1X/DAY
     Route: 042
     Dates: start: 20210204, end: 20210206
  14. PALONOSETRON HYDROCHLORIDE. [Concomitant]
     Active Substance: PALONOSETRON HYDROCHLORIDE
     Dosage: 5 ML, 1X/DAY
     Route: 042
     Dates: start: 20201224, end: 20201227
  15. COMPOUND AMMONIUM GLYCYRRHETATE S [Concomitant]
     Indication: PROPHYLAXIS
     Dosage: 160 MG, 1X/DAY
     Route: 042
     Dates: start: 20201205, end: 20201207
  16. COMPOUND MANNITOL [Concomitant]
     Indication: PROPHYLAXIS
     Dosage: 250 ML, 1X/DAY
     Route: 042
     Dates: start: 20201205, end: 20201207
  17. KN046 [Suspect]
     Active Substance: INVESTIGATIONAL PRODUCT
     Indication: OESOPHAGEAL SQUAMOUS CELL CARCINOMA
     Dosage: 15 MG/KG, 1 X/3 WEEKS (4 CYCLES), 1X/2 WEEKS (FROM CYCLE 5)
     Route: 042
     Dates: start: 20201204
  18. PACLITAXEL. [Concomitant]
     Active Substance: PACLITAXEL
     Indication: OESOPHAGEAL SQUAMOUS CELL CARCINOMA
     Dosage: 30 MG/5 ML, ONCE EVERY 3 WEEKS, IV INFUSION
     Route: 042
     Dates: start: 20201204, end: 20210204
  19. CIMETIDINE [Concomitant]
     Active Substance: CIMETIDINE
     Dosage: 4 ML, 2X/DAY
     Route: 042
     Dates: start: 20210118, end: 20210118
  20. PARACETAMOL [Concomitant]
     Active Substance: ACETAMINOPHEN
     Dosage: 1000 MG, 1X/DAY
     Route: 048
     Dates: start: 20201224, end: 20201224
  21. PROMETHAZINE HYDROCHLORIDE. [Concomitant]
     Active Substance: PROMETHAZINE HYDROCHLORIDE
     Dosage: 1 ML, 1X/DAY
     Route: 030
     Dates: start: 20210225, end: 20210225
  22. PANTOPRAZOLE SODIUM. [Concomitant]
     Active Substance: PANTOPRAZOLE SODIUM
     Indication: PROPHYLAXIS
     Dosage: 42.3 MG, 1X/DAY
     Route: 042
     Dates: start: 20201204, end: 20201207
  23. PANTOPRAZOLE SODIUM. [Concomitant]
     Active Substance: PANTOPRAZOLE SODIUM
     Dosage: 42.3 MG, 1X/DAY
     Route: 042
     Dates: start: 20210118, end: 20210121
  24. COMPOUND AMMONIUM GLYCYRRHETATE S [Concomitant]
     Dosage: 160 MG, 1X/DAY
     Route: 042
     Dates: start: 20201225, end: 20201227
  25. SODIUM POTASSIUM MAGNESIUM CALCIUM AND GLUCOSE [Concomitant]
     Dosage: 500 ML, 1X/DAY
     Route: 042
     Dates: start: 20201228, end: 20201228
  26. PARACETAMOL [Concomitant]
     Active Substance: ACETAMINOPHEN
     Indication: PROPHYLAXIS
     Dosage: 1000 MG, 1X/DAY
     Route: 048
     Dates: start: 20201204, end: 20201204
  27. PROMETHAZINE HYDROCHLORIDE. [Concomitant]
     Active Substance: PROMETHAZINE HYDROCHLORIDE
     Indication: PROPHYLAXIS
     Dosage: 1 ML, 1X/DAY
     Route: 030
     Dates: start: 20201204, end: 20201204
  28. PROMETHAZINE HYDROCHLORIDE. [Concomitant]
     Active Substance: PROMETHAZINE HYDROCHLORIDE
     Dosage: 1 ML, 1X/DAY
     Route: 030
     Dates: start: 20201224, end: 20201224
  29. IBUPROFEN. [Concomitant]
     Active Substance: IBUPROFEN
     Indication: PROPHYLAXIS
     Dosage: 0.3 G, 1X/DAY, SUSTAINED RELEASE CAPSULES
     Route: 048
     Dates: start: 20201205, end: 20201208
  30. NIAODUQING [Concomitant]
     Active Substance: HERBALS
     Indication: DECREASED APPETITE
     Dosage: 5 G, 3X/DAY
     Route: 048
     Dates: start: 20210225
  31. CIMETIDINE [Concomitant]
     Active Substance: CIMETIDINE
     Dosage: 4 ML, 2X/DAY
     Route: 042
     Dates: start: 20210204, end: 20210204
  32. DEXAMETHASONE. [Concomitant]
     Active Substance: DEXAMETHASONE
     Indication: PROPHYLAXIS
     Dosage: 20 MG, 2X/DAY
     Route: 048
     Dates: start: 20201204, end: 20201204
  33. PARACETAMOL [Concomitant]
     Active Substance: ACETAMINOPHEN
     Dosage: 1 G, 1X/DAY
     Route: 048
     Dates: start: 20210225, end: 20210225
  34. PALONOSETRON HYDROCHLORIDE. [Concomitant]
     Active Substance: PALONOSETRON HYDROCHLORIDE
     Dosage: 5 ML, 1X/DAY
     Route: 042
     Dates: start: 20210204, end: 20210206
  35. L?GLUTAMINE [GLUTAMIC ACID] [Concomitant]
     Active Substance: GLUTAMIC ACID
     Indication: PROPHYLAXIS
     Dosage: 0.67 G, 3X/DAY
     Route: 048
     Dates: start: 20201125, end: 20201208
  36. COMPOUND MANNITOL [Concomitant]
     Dosage: 250 ML, 1X/DAY
     Route: 042
     Dates: start: 20210119, end: 20210119
  37. MEGESTROL ACETATE. [Concomitant]
     Active Substance: MEGESTROL ACETATE
     Indication: PROPHYLAXIS
     Dosage: 160 MG, 1X/DAY
     Route: 048
     Dates: start: 20210205, end: 20210218
  38. CIMETIDINE [Concomitant]
     Active Substance: CIMETIDINE
     Dosage: 4 ML, 1X/DAY
     Route: 042
     Dates: start: 20210225, end: 20210225
  39. DEXAMETHASONE. [Concomitant]
     Active Substance: DEXAMETHASONE
     Dosage: 20 MG, 2X/DAY
     Route: 048
     Dates: start: 20201214, end: 20201214
  40. DEXAMETHASONE. [Concomitant]
     Active Substance: DEXAMETHASONE
     Dosage: 20 MG, 2X/DAY
     Route: 048
     Dates: start: 20210118, end: 20210118
  41. DIPHENHYDRAMINE. [Concomitant]
     Active Substance: DIPHENHYDRAMINE
     Dosage: 50 MG, 2X/DAY
     Route: 048
     Dates: start: 20210204, end: 20210204
  42. PROMETHAZINE HYDROCHLORIDE. [Concomitant]
     Active Substance: PROMETHAZINE HYDROCHLORIDE
     Dosage: 1 ML, 1X/DAY
     Route: 030
     Dates: start: 20210118, end: 20210118
  43. PROMETHAZINE HYDROCHLORIDE. [Concomitant]
     Active Substance: PROMETHAZINE HYDROCHLORIDE
     Dosage: 1 ML, 1X/DAY
     Route: 030
     Dates: start: 20210204, end: 20210204
  44. PALONOSETRON HYDROCHLORIDE. [Concomitant]
     Active Substance: PALONOSETRON HYDROCHLORIDE
     Indication: PROPHYLAXIS
     Dosage: 5 ML, 1X/DAY
     Route: 042
     Dates: start: 20201204, end: 20201207
  45. COMPOUND AMMONIUM GLYCYRRHETATE S [Concomitant]
     Dosage: 160 MG, 1X/DAY
     Route: 042
     Dates: start: 20210204, end: 20210204
  46. COMPOUND MANNITOL [Concomitant]
     Dosage: 250 ML, 1X/DAY
     Route: 042
     Dates: start: 20210205, end: 20210206
  47. DEXAMETHASONE. [Concomitant]
     Active Substance: DEXAMETHASONE
     Dosage: 20 MG, 2X/DAY
     Route: 048
     Dates: start: 20210204, end: 20210204
  48. PALONOSETRON HYDROCHLORIDE. [Concomitant]
     Active Substance: PALONOSETRON HYDROCHLORIDE
     Dosage: 5 ML, 1X/DAY
     Route: 042
     Dates: start: 20210118, end: 20210121
  49. COMPOUND AMMONIUM GLYCYRRHETATE S [Concomitant]
     Dosage: 160 MG, 1X/DAY
     Route: 042
     Dates: start: 20210119, end: 20210121

REACTIONS (2)
  - Dysphagia [Recovered/Resolved]
  - Performance status decreased [Recovering/Resolving]

NARRATIVE: CASE EVENT DATE: 20210117
